FAERS Safety Report 19720495 (Version 1)
Quarter: 2021Q3

REPORT INFORMATION
  Report Type: Spontaneous
  Country: GB (occurrence: GB)
  Receive Date: 20210818
  Receipt Date: 20210818
  Transmission Date: 20211014
  Serious: Yes (Hospitalization, Other)
  Sender: FDA-Public Use
  Company Number: GB-ASCEND THERAPEUTICS US, LLC-2115286

PATIENT
  Sex: Male

DRUGS (4)
  1. ESTROGEL [Suspect]
     Active Substance: ESTRADIOL
  2. CYPROTERONE ACETATE(CYPROTERONE ACETATE)(CYPROTERONE ACETATE) [Suspect]
     Active Substance: CYPROTERONE ACETATE
     Route: 065
     Dates: start: 1998, end: 2018
  3. ESTRADIOL, NOS (ESTRADIOL) [Suspect]
     Active Substance: ESTRADIOL
     Route: 065
     Dates: start: 1998, end: 2018
  4. ESTROGEL [Suspect]
     Active Substance: ESTRADIOL
     Indication: TRANSGENDER HORMONAL THERAPY
     Route: 065
     Dates: start: 1998, end: 2018

REACTIONS (5)
  - Meningioma [Recovered/Resolved]
  - Disease progression [Recovered/Resolved]
  - Off label use [None]
  - Meningioma [Recovered/Resolved]
  - Tremor [Unknown]

NARRATIVE: CASE EVENT DATE: 1998
